FAERS Safety Report 5839356-1 (Version None)
Quarter: 2008Q3

REPORT INFORMATION
  Report Type: 
  Country: None (occurrence: None)
  Receive Date: 20080806
  Receipt Date: 20080730
  Transmission Date: 20090109
  Serious: Yes (Life-Threatening)
  Sender: FDA-Public Use
  Company Number: 003195

PATIENT
  Age: 28 Year
  Sex: Male

DRUGS (8)
  1. BUSULFEX [Suspect]
     Indication: STEM CELL TRANSPLANT
     Dosage: 29.19 ML, INTRAVENOUS; 34.92 ML, DAILY DOSE; INTRAVENOUS; 8.73 ML, DAILY DOSE; INTRAVENOUS
     Route: 042
     Dates: start: 20070320, end: 20070320
  2. BUSULFEX [Suspect]
     Indication: STEM CELL TRANSPLANT
     Dosage: 29.19 ML, INTRAVENOUS; 34.92 ML, DAILY DOSE; INTRAVENOUS; 8.73 ML, DAILY DOSE; INTRAVENOUS
     Route: 042
     Dates: start: 20070321, end: 20070323
  3. BUSULFEX [Suspect]
     Indication: STEM CELL TRANSPLANT
     Dosage: 29.19 ML, INTRAVENOUS; 34.92 ML, DAILY DOSE; INTRAVENOUS; 8.73 ML, DAILY DOSE; INTRAVENOUS
     Route: 042
     Dates: start: 20070324, end: 20070324
  4. CYCLOPHOSPHAMIDE [Concomitant]
  5. VALPROATE SODIUM [Concomitant]
  6. FILGRASTIM (FILGRASTIM) [Concomitant]
  7. METHOTREXATE [Concomitant]
  8. CYCLOSPORINE [Concomitant]

REACTIONS (2)
  - ACUTE LYMPHOCYTIC LEUKAEMIA RECURRENT [None]
  - FEBRILE NEUTROPENIA [None]
